FAERS Safety Report 5921887-7 (Version None)
Quarter: 2008Q4

REPORT INFORMATION
  Report Type: 
  Country: None (occurrence: None)
  Receive Date: 20081015
  Receipt Date: 20081003
  Transmission Date: 20090506
  Serious: Yes (Other)
  Sender: FDA-Public Use
  Company Number: 08-001450

PATIENT
  Age: 28 Year
  Sex: Female
  Weight: 81.2 kg

DRUGS (1)
  1. FEMCON FE [Suspect]
     Indication: CONTRACEPTION
     Dosage: 0.4 MG/35 MCG, QD, ORAL
     Route: 048
     Dates: start: 20080801, end: 20080901

REACTIONS (9)
  - AMENORRHOEA [None]
  - BREAST TENDERNESS [None]
  - DIARRHOEA [None]
  - DRUG EXPOSURE BEFORE PREGNANCY [None]
  - DYSMENORRHOEA [None]
  - FOETAL HEART RATE DISORDER [None]
  - PREGNANCY ON CONTRACEPTIVE [None]
  - RENAL PAIN [None]
  - VOMITING [None]
